FAERS Safety Report 19508184 (Version 1)
Quarter: 2021Q3

REPORT INFORMATION
  Report Type: Spontaneous
  Country: CN (occurrence: CN)
  Receive Date: 20210708
  Receipt Date: 20210708
  Transmission Date: 20211014
  Serious: Yes (Other)
  Sender: FDA-Public Use
  Company Number: CN-PFIZER INC-2021788100

PATIENT
  Age: 68 Year
  Sex: Male

DRUGS (4)
  1. SULPERAZON [Suspect]
     Active Substance: CEFOPERAZONE SODIUM\SULBACTAM SODIUM
     Indication: ANTI-INFECTIVE THERAPY
     Dosage: 3 G, 2X/DAY (EVERY 12 HOURS)
     Route: 041
     Dates: start: 20210522, end: 20210524
  2. TYGACIL [Suspect]
     Active Substance: TIGECYCLINE
     Indication: ANTI-INFECTIVE THERAPY
     Dosage: 50 MG, 2X/DAY (EVERY 12 HOURS)
     Route: 041
     Dates: start: 20210522, end: 20210524
  3. VORICONAZOLE. [Suspect]
     Active Substance: VORICONAZOLE
     Indication: ANTIFUNGAL TREATMENT
     Dosage: 0.2 G, 2X/DAY
     Route: 041
     Dates: start: 20210514, end: 20210521
  4. VORICONAZOLE. [Suspect]
     Active Substance: VORICONAZOLE
     Dosage: 0.3 G, DAILY (0.1 G IN MORNING AND 0.2 G IN EVENING)
     Route: 041
     Dates: start: 20210521, end: 20210524

REACTIONS (3)
  - Liver injury [Recovered/Resolved]
  - Blood urea increased [Recovered/Resolved]
  - Blood creatinine increased [Recovered/Resolved]

NARRATIVE: CASE EVENT DATE: 20210523
